FAERS Safety Report 20609192 (Version 1)
Quarter: 2022Q1

REPORT INFORMATION
  Report Type: Spontaneous
  Country: KR (occurrence: KR)
  Receive Date: 20220317
  Receipt Date: 20220317
  Transmission Date: 20220423
  Serious: Yes (Death, Other)
  Sender: FDA-Public Use
  Company Number: KR-009507513-2109KOR002178

PATIENT
  Age: 54 Year
  Sex: Female
  Weight: 41.5 kg

DRUGS (4)
  1. KEYTRUDA [Suspect]
     Active Substance: PEMBROLIZUMAB
     Indication: Non-small cell lung cancer
     Dosage: 200 MILLIGRAM, Q3W
     Route: 042
     Dates: start: 20210120, end: 20210120
  2. FOLIC ACID [Concomitant]
     Active Substance: FOLIC ACID
     Indication: Product used for unknown indication
     Dosage: 1 TABLET, QD
     Route: 048
     Dates: start: 20201127, end: 20210120
  3. YUHAN DEXAMETHASONE [Concomitant]
     Indication: Product used for unknown indication
     Dosage: 4 MILLIGRAM, QD; STRENGTH: 5 MG/ML
     Route: 042
     Dates: start: 20210118, end: 20210119
  4. LEVOFLOXACIN [Concomitant]
     Active Substance: LEVOFLOXACIN
     Indication: Antibiotic therapy
     Dosage: 750 MILLIGRAM, QD; STRENGTH: 750MG/150ML
     Route: 042
     Dates: start: 20210202, end: 20210206

REACTIONS (4)
  - Acute respiratory distress syndrome [Fatal]
  - Immune-mediated lung disease [Fatal]
  - Neoplasm malignant [Unknown]
  - Pneumonia [Unknown]

NARRATIVE: CASE EVENT DATE: 20210101
